FAERS Safety Report 12300008 (Version 1)
Quarter: 2016Q2

REPORT INFORMATION
  Report Type: Spontaneous
  Country: US (occurrence: US)
  Receive Date: 20160425
  Receipt Date: 20160425
  Transmission Date: 20160815
  Serious: Yes (Other)
  Sender: FDA-Public Use
  Company Number: US-BAYER-2016-075914

PATIENT
  Age: 72 Year
  Sex: Female
  Weight: 49.89 kg

DRUGS (2)
  1. CLARITIN [Suspect]
     Active Substance: LORATADINE
     Dosage: UNK
  2. ALEVE [Suspect]
     Active Substance: NAPROXEN SODIUM
     Indication: BACK PAIN
     Dosage: 1 DF, ONCE
     Route: 048
     Dates: start: 20160417, end: 20160417

REACTIONS (6)
  - Product use issue [None]
  - Hypersensitivity [None]
  - Oral discomfort [None]
  - Oral pain [None]
  - Lip swelling [None]
  - Lip disorder [None]
